FAERS Safety Report 25216885 (Version 2)
Quarter: 2025Q2

REPORT INFORMATION
  Report Type: Spontaneous
  Country: US (occurrence: US)
  Receive Date: 20250419
  Receipt Date: 20250419
  Transmission Date: 20250716
  Serious: Yes (Other)
  Sender: AMGEN
  Company Number: US-AMGEN-USASP2025071454

PATIENT
  Age: 38 Year
  Sex: Female

DRUGS (16)
  1. ROMIPLOSTIM [Suspect]
     Active Substance: ROMIPLOSTIM
     Indication: Thrombocytopenia
     Route: 065
  2. PREDNISONE [Suspect]
     Active Substance: PREDNISONE
     Indication: Graft versus host disease in skin
     Route: 065
  3. PREDNISONE [Suspect]
     Active Substance: PREDNISONE
     Indication: Graft versus host disease in gastrointestinal tract
     Route: 065
  4. HYDROXYCHLOROQUINE [Concomitant]
     Active Substance: HYDROXYCHLOROQUINE
     Indication: Systemic lupus erythematosus
     Route: 065
  5. CYTARABINE [Concomitant]
     Active Substance: CYTARABINE
     Indication: Myeloid leukaemia
     Dosage: 2 MILLIGRAM/SQ. METER, QD
  6. DAUNORUBICIN [Concomitant]
     Active Substance: DAUNORUBICIN
     Indication: Myeloid leukaemia
     Route: 065
  7. CYTARABINE\FLUDARABINE\GRANULOCYTE COLONY-STIMULATING FACTOR NOS\IDARU [Concomitant]
     Active Substance: CYTARABINE\FLUDARABINE\GRANULOCYTE COLONY-STIMULATING FACTOR NOS\IDARUBICIN
     Indication: Myeloid leukaemia
     Dosage: 400 MG/DL, QD ((D0 - D14))
     Route: 048
  8. VENETOCLAX [Concomitant]
     Active Substance: VENETOCLAX
     Indication: Myeloid leukaemia
     Dosage: 400 MILLIGRAM, QD
  9. CLADRIBINE [Concomitant]
     Active Substance: CLADRIBINE
     Indication: Myeloid leukaemia
     Dosage: 5 MILLIGRAM/SQ. METER, QD
     Route: 040
  10. CLADRIBINE [Concomitant]
     Active Substance: CLADRIBINE
     Indication: Myeloid leukaemia
  11. ZARXIO [Concomitant]
     Active Substance: FILGRASTIM-SNDZ
     Indication: Myeloid leukaemia
     Dosage: 300 MICROGRAM, QD
  12. ZOFRAN [Concomitant]
     Active Substance: ONDANSETRON HYDROCHLORIDE
     Indication: Nausea
  13. AYGESTIN [Concomitant]
     Active Substance: NORETHINDRONE ACETATE
     Indication: Heavy menstrual bleeding
  14. AMICAR [Concomitant]
     Active Substance: AMINOCAPROIC ACID
     Indication: Heavy menstrual bleeding
  15. PROMACTA [Concomitant]
     Active Substance: ELTROMBOPAG OLAMINE
     Indication: Thrombocytopenia
  16. ONUREG [Concomitant]
     Active Substance: AZACITIDINE

REACTIONS (7)
  - Graft versus host disease in gastrointestinal tract [Unknown]
  - Graft versus host disease in skin [Unknown]
  - T-lymphocyte count decreased [Unknown]
  - Cytomegalovirus test positive [Unknown]
  - Lung opacity [Unknown]
  - Drug ineffective [Unknown]
  - Off label use [Unknown]
